FAERS Safety Report 9742793 (Version 1)
Quarter: 2013Q4

REPORT INFORMATION
  Report Type: Spontaneous
  Country: US (occurrence: US)
  Receive Date: 20131210
  Receipt Date: 20131210
  Transmission Date: 20140711
  Serious: No
  Sender: FDA-Public Use
  Company Number: US-ENDO PHARMACEUTICALS INC.-BACL20110012

PATIENT
  Age: 55 Year
  Sex: Male
  Weight: 77.18 kg

DRUGS (2)
  1. BACLOFEN TABLETS 20MG [Suspect]
     Indication: CLONUS
     Route: 048
     Dates: start: 2008
  2. BACLOFEN TABLETS 20MG [Suspect]
     Indication: HYPERREFLEXIA

REACTIONS (3)
  - Tremor [Recovered/Resolved]
  - Dizziness [Recovered/Resolved]
  - Tinnitus [Recovered/Resolved]
